FAERS Safety Report 5141107-3 (Version None)
Quarter: 2006Q4

REPORT INFORMATION
  Report Type: 
  Country: None (occurrence: None)
  Receive Date: 20061101
  Receipt Date: 20061019
  Transmission Date: 20070319
  Serious: Yes (Other)
  Sender: FDA-Public Use
  Company Number: PHBS2006BR16390

PATIENT
  Age: 71 Year
  Sex: Male
  Weight: 80 kg

DRUGS (3)
  1. ANTIDIABETICS [Suspect]
  2. ANTIARRHYTHMICS, CLASS I AND III [Suspect]
  3. DIOVAN [Suspect]
     Indication: HYPERTENSION
     Dosage: 80 MG/DAY
     Route: 048

REACTIONS (3)
  - DRUG INTERACTION [None]
  - HYPERTENSION [None]
  - THROMBOSIS [None]
